FAERS Safety Report 5208932-1 (Version None)
Quarter: 2007Q1

REPORT INFORMATION
  Report Type: 
  Country: None (occurrence: None)
  Receive Date: 20070111
  Receipt Date: 20070111
  Transmission Date: 20070707
  Serious: Yes (Other)
  Sender: FDA-Public Use
  Company Number: None

PATIENT
  Age: 48 Year
  Sex: Male
  Weight: 62.6 kg

DRUGS (2)
  1. LEVAQUIN [Suspect]
     Indication: BIOPSY PROSTATE
     Dosage: 500MG, 500MG QD, ORAL
     Route: 048
     Dates: start: 20061101, end: 20061103
  2. LEVAQUIN [Suspect]
     Indication: PROPHYLAXIS
     Dosage: 500MG, 500MG QD, ORAL
     Route: 048
     Dates: start: 20061101, end: 20061103

REACTIONS (1)
  - RASH [None]
